FAERS Safety Report 7110831-5 (Version None)
Quarter: 2010Q4

REPORT INFORMATION
  Report Type: 
  Country: None (occurrence: None)
  Receive Date: 20101118
  Receipt Date: 20101114
  Transmission Date: 20110411
  Serious: Yes (Death, Other)
  Sender: FDA-Public Use
  Company Number: IT-CELGENEUS-083-21880-10090877

PATIENT
  Sex: Male

DRUGS (7)
  1. REVLIMID [Suspect]
     Indication: MULTIPLE MYELOMA
     Route: 048
     Dates: start: 20081211, end: 20090612
  2. DEXAMETHASONE [Suspect]
     Indication: MULTIPLE MYELOMA
     Route: 048
     Dates: start: 20081211, end: 20090612
  3. CYCLOPHOSPHAMIDE [Suspect]
     Indication: MULTIPLE MYELOMA
     Route: 048
     Dates: start: 20081211, end: 20090612
  4. ACYCLOVIR [Concomitant]
     Indication: PROPHYLAXIS
     Route: 048
  5. BACTRIM [Concomitant]
     Indication: PROPHYLAXIS
     Route: 048
  6. MYCOSTATIN [Concomitant]
     Indication: PROPHYLAXIS
     Route: 048
  7. OMEPRAZEN [Concomitant]
     Indication: PROPHYLAXIS
     Route: 048

REACTIONS (1)
  - PLASMACYTOMA [None]
